FAERS Safety Report 5444292-9 (Version None)
Quarter: 2007Q3

REPORT INFORMATION
  Report Type: 
  Country: None (occurrence: None)
  Receive Date: 20070904
  Receipt Date: 20070904
  Transmission Date: 20080115
  Serious: No
  Sender: FDA-Public Use
  Company Number: None

PATIENT
  Sex: Female
  Weight: 55.7924 kg

DRUGS (1)
  1. KENALOG [Suspect]
     Indication: ECZEMA
     Dosage: 1  ID
     Route: 026
     Dates: start: 20070618, end: 20070618

REACTIONS (6)
  - ATROPHY [None]
  - BACK PAIN [None]
  - HEADACHE [None]
  - MENORRHAGIA [None]
  - PAIN IN EXTREMITY [None]
  - SKIN STRIAE [None]
